FAERS Safety Report 5581446-5 (Version None)
Quarter: 2007Q4

REPORT INFORMATION
  Report Type: 
  Country: None (occurrence: None)
  Receive Date: 20071231
  Receipt Date: 20071231
  Transmission Date: 20080405
  Serious: Yes (Hospitalization)
  Sender: FDA-Public Use
  Company Number: None

PATIENT
  Sex: Male
  Weight: 72.5755 kg

DRUGS (8)
  1. CIALIS [Suspect]
     Indication: ERECTILE DYSFUNCTION
     Dosage: 1 PILL AS NEEDED PO
     Route: 048
  2. HUMALOG [Concomitant]
  3. LANTUS [Concomitant]
  4. 81MG ASPIRIN [Concomitant]
  5. CHOLOX [Concomitant]
  6. SUPER PROSTATE FORMULA [Concomitant]
  7. ASCORBIC ACID [Concomitant]
  8. PAPAYA TABLETS [Concomitant]

REACTIONS (5)
  - DEAFNESS UNILATERAL [None]
  - DIZZINESS [None]
  - HYPOACUSIS [None]
  - MYALGIA [None]
  - TINNITUS [None]
